FAERS Safety Report 4530363-8 (Version None)
Quarter: 2004Q4

REPORT INFORMATION
  Report Type: 
  Country: None (occurrence: None)
  Receive Date: 20041217
  Receipt Date: 20040909
  Transmission Date: 20050328
  Serious: Yes (Other)
  Sender: FDA-Public Use
  Company Number: NZ-BRISTOL-MYERS SQUIBB COMPANY-12697959

PATIENT
  Age: 65 Year
  Sex: Male

DRUGS (3)
  1. HYDREA [Suspect]
     Indication: THROMBOCYTHAEMIA
     Dosage: 1 MG ONCE DAILY  THEN 0.5 MG TWICE DAILY
     Route: 048
  2. ACCUPRIL [Concomitant]
  3. LOSEC [Concomitant]

REACTIONS (3)
  - DISORIENTATION [None]
  - GLAUCOMA [None]
  - VISUAL DISTURBANCE [None]
